FAERS Safety Report 10415333 (Version 5)
Quarter: 2015Q4

REPORT INFORMATION
  Report Type: Report from Study
  Country: JP (occurrence: JP)
  Receive Date: 20140828
  Receipt Date: 20151006
  Transmission Date: 20160304
  Serious: Yes (Other)
  Sender: FDA-Public Use
  Company Number: JP-JNJFOC-20140822267

PATIENT
  Age: 57 Year
  Sex: Male
  Weight: 62 kg

DRUGS (21)
  1. PEGASYS [Suspect]
     Active Substance: PEGINTERFERON ALFA-2A
     Indication: CHRONIC HEPATITIS C
     Route: 058
     Dates: start: 20140108, end: 20140618
  2. EPADEL S [Concomitant]
     Active Substance: ICOSAPENT ETHYL
     Indication: PROPHYLAXIS
     Route: 048
     Dates: start: 20140108
  3. NEOSTELINGREEN [Concomitant]
     Indication: PRODUCT USED FOR UNKNOWN INDICATION
     Route: 049
     Dates: start: 20140501, end: 20140520
  4. ALLELOCK [Concomitant]
     Active Substance: OLOPATADINE HYDROCHLORIDE
     Indication: RASH PRURITIC
     Route: 048
     Dates: start: 20140501, end: 20140604
  5. SOVRIAD [Suspect]
     Active Substance: SIMEPREVIR
     Indication: CHRONIC HEPATITIS C
     Route: 048
     Dates: start: 20140108, end: 20140402
  6. RHYTHMY [Concomitant]
     Active Substance: RILMAZAFONE HYDROCHLORIDE
     Indication: INSOMNIA
     Route: 048
     Dates: start: 20140109, end: 20140118
  7. NEOSTELINGREEN [Concomitant]
     Indication: PRODUCT USED FOR UNKNOWN INDICATION
     Route: 049
     Dates: start: 20140117, end: 20140124
  8. LIDOMEX [Concomitant]
     Active Substance: PREDNISOLONE VALERATE ACETATE
     Indication: RASH PRURITIC
     Route: 061
     Dates: start: 20140501, end: 20140520
  9. RIBAVIRIN. [Concomitant]
     Active Substance: RIBAVIRIN
     Indication: CHRONIC HEPATITIS C
     Route: 048
     Dates: start: 20140108, end: 20140624
  10. LENDORMIN [Concomitant]
     Active Substance: BROTIZOLAM
     Indication: INSOMNIA
     Route: 048
     Dates: start: 20140117
  11. ANTEBATE [Concomitant]
     Active Substance: BETAMETHASONE DIPROPIONATE
     Indication: RASH PRURITIC
     Route: 061
     Dates: start: 20140501, end: 20140520
  12. RHYTHMY [Concomitant]
     Active Substance: RILMAZAFONE HYDROCHLORIDE
     Indication: INSOMNIA
     Route: 048
     Dates: start: 20140605
  13. FUNGIZONE [Concomitant]
     Active Substance: AMPHOTERICIN B
     Indication: ORAL CANDIDIASIS
     Route: 048
     Dates: start: 20140117, end: 20140124
  14. ACINON [Concomitant]
     Active Substance: NIZATIDINE
     Indication: GASTRITIS
     Route: 048
     Dates: start: 20140130
  15. DEPAS [Concomitant]
     Active Substance: ETIZOLAM
     Indication: INSOMNIA
     Dosage: 1 MG AS NEEDED BASIS
     Route: 048
     Dates: start: 20140111, end: 20140118
  16. NEOSTELINGREEN [Concomitant]
     Indication: ORAL CANDIDIASIS
     Route: 049
     Dates: start: 20140117, end: 20140124
  17. NEOSTELINGREEN [Concomitant]
     Indication: ORAL CANDIDIASIS
     Route: 049
     Dates: start: 20140501, end: 20140520
  18. DEXALTIN [Concomitant]
     Active Substance: DEXAMETHASONE
     Indication: STOMATITIS
     Route: 061
     Dates: start: 20140403
  19. NAUZELIN [Concomitant]
     Active Substance: DOMPERIDONE
     Indication: DECREASED APPETITE
     Route: 048
     Dates: start: 20140403
  20. ARASENA-A [Concomitant]
     Active Substance: VIDARABINE
     Indication: ORAL HERPES
     Route: 061
     Dates: start: 20140121, end: 20140128
  21. HEPARINOID [Concomitant]
     Active Substance: CHONDROITIN SULFATE (BOVINE)
     Indication: PRODUCT USED FOR UNKNOWN INDICATION
     Route: 061
     Dates: start: 20140501, end: 20140520

REACTIONS (10)
  - Stomatitis [Recovering/Resolving]
  - Xerosis [Recovering/Resolving]
  - Decreased appetite [Recovering/Resolving]
  - Gastritis [Recovering/Resolving]
  - Insomnia [Recovered/Resolved]
  - Rash pruritic [Recovering/Resolving]
  - Oral herpes [Recovering/Resolving]
  - Haemoglobin decreased [Recovering/Resolving]
  - Platelet count decreased [Recovering/Resolving]
  - Oral candidiasis [Recovering/Resolving]

NARRATIVE: CASE EVENT DATE: 20140108
